FAERS Safety Report 7540837-3 (Version None)
Quarter: 2011Q2

REPORT INFORMATION
  Report Type: 
  Country: None (occurrence: None)
  Receive Date: 20110610
  Receipt Date: 20110601
  Transmission Date: 20111010
  Serious: Yes (Hospitalization)
  Sender: FDA-Public Use
  Company Number: JP-ROCHE-781238

PATIENT
  Age: 61 Year
  Sex: Female

DRUGS (4)
  1. HERCEPTIN [Suspect]
     Route: 041
  2. HERCEPTIN [Suspect]
     Indication: BREAST CANCER METASTATIC
     Route: 041
     Dates: start: 20091001
  3. ZOMETA [Concomitant]
     Route: 041
     Dates: start: 20090901, end: 20091101
  4. PACLITAXEL [Concomitant]
     Route: 041
     Dates: start: 20091001

REACTIONS (1)
  - FANCONI SYNDROME [None]
